FAERS Safety Report 13630327 (Version 3)
Quarter: 2025Q3

REPORT INFORMATION
  Report Type: Spontaneous
  Country: GB (occurrence: GB)
  Receive Date: 20170608
  Receipt Date: 20250921
  Transmission Date: 20251020
  Serious: Yes (Other)
  Sender: TEVA
  Company Number: GB-TEVA-775439ROM

PATIENT
  Age: 65 Year
  Sex: Female

DRUGS (4)
  1. PREDNISOLONE [Suspect]
     Active Substance: PREDNISOLONE
     Indication: Chronic obstructive pulmonary disease
     Route: 048
  2. BECLOMETHASONE\FORMOTEROL [Suspect]
     Active Substance: BECLOMETHASONE\FORMOTEROL
     Indication: Chronic obstructive pulmonary disease
     Route: 065
  3. ALBUTEROL [Concomitant]
     Active Substance: ALBUTEROL
     Indication: Chronic obstructive pulmonary disease
     Route: 065
  4. TIOTROPIUM BROMIDE [Concomitant]
     Active Substance: TIOTROPIUM BROMIDE
     Indication: Chronic obstructive pulmonary disease
     Route: 065

REACTIONS (1)
  - Bronchopulmonary aspergillosis [Recovering/Resolving]
